FAERS Safety Report 7719670-5 (Version None)
Quarter: 2011Q3

REPORT INFORMATION
  Report Type: 
  Country: None (occurrence: None)
  Receive Date: 20110830
  Receipt Date: 20110819
  Transmission Date: 20111222
  Serious: Yes (Hospitalization, Other)
  Sender: FDA-Public Use
  Company Number: US-RB-010420-10

PATIENT
  Age: 29 Year
  Sex: Female

DRUGS (7)
  1. SUBOXONE [Suspect]
     Indication: PRODUCT USED FOR UNKNOWN INDICATION
     Dosage: SUBLINGUAL FILM; DOSING INFORMATION UNKNOWN
     Route: 065
  2. METHADONE HCL [Suspect]
     Indication: PRODUCT USED FOR UNKNOWN INDICATION
     Dosage: UNKNOWN DOSING DETAILS
     Route: 065
  3. SEROQUEL [Concomitant]
     Indication: INSOMNIA
     Dosage: DOSING DETAILS UNKNOWN
     Route: 065
  4. SUBUTEX [Suspect]
     Indication: DRUG DEPENDENCE
     Route: 060
     Dates: start: 20100201, end: 20100718
  5. SUBUTEX [Suspect]
     Dosage: DOSING INFORMATION UNKNOWN
     Route: 065
  6. LEXAPRO [Concomitant]
     Indication: DEPRESSION
     Dosage: DOSING DETAILS UNKNOWN
     Route: 065
  7. SUBOXONE [Suspect]
     Indication: DRUG DEPENDENCE
     Route: 060
     Dates: start: 20090901, end: 20100201

REACTIONS (8)
  - GALLBLADDER DISORDER [None]
  - DECREASED APPETITE [None]
  - CHOLELITHIASIS [None]
  - ABDOMINAL PAIN [None]
  - WEIGHT DECREASED [None]
  - GALLBLADDER PAIN [None]
  - MATERNAL EXPOSURE DURING PREGNANCY [None]
  - HYPOGLYCAEMIA [None]
